FAERS Safety Report 13710105 (Version 2)
Quarter: 2017Q3

REPORT INFORMATION
  Report Type: Spontaneous
  Country: US (occurrence: US)
  Receive Date: 20170703
  Receipt Date: 20170807
  Transmission Date: 20171127
  Serious: No
  Sender: FDA-Public Use
  Company Number: US-TEVA-772448ACC

PATIENT
  Sex: Male

DRUGS (1)
  1. LIDOCAINE TOPICAL 5 PERCENT PATCH [Suspect]
     Active Substance: LIDOCAINE
     Indication: SCIATICA
     Dates: start: 2017

REACTIONS (2)
  - Product storage error [Unknown]
  - Drug effect delayed [Unknown]
